FAERS Safety Report 5122143-X (Version None)
Quarter: 2006Q4

REPORT INFORMATION
  Report Type: 
  Country: None (occurrence: None)
  Receive Date: 20061004
  Receipt Date: 20061004
  Transmission Date: 20070319
  Serious: Yes (Other)
  Sender: FDA-Public Use
  Company Number: None

PATIENT
  Age: 36 Year
  Sex: Male
  Weight: 102.0593 kg

DRUGS (1)
  1. PAROXETINE [Suspect]
     Indication: BIPOLAR DISORDER
     Dosage: 20 MG TWICE A DAY PO
     Route: 048
     Dates: start: 20050101, end: 20061003

REACTIONS (2)
  - AGGRESSION [None]
  - ANGER [None]
